FAERS Safety Report 9301961 (Version 1)
Quarter: 2013Q2

REPORT INFORMATION
  Report Type: Spontaneous
  Country: US (occurrence: US)
  Receive Date: 20130521
  Receipt Date: 20130521
  Transmission Date: 20140414
  Serious: No
  Sender: FDA-Public Use
  Company Number: US-009507513-1305USA006346

PATIENT
  Sex: Male

DRUGS (2)
  1. SAPHRIS [Suspect]
     Indication: SCHIZOPHRENIA
     Dosage: 10 MG, BID
     Route: 060
     Dates: start: 201304, end: 20130507
  2. SAPHRIS [Suspect]
     Dosage: 10 MG ONLY AT NIGHT
     Route: 060
     Dates: start: 20130508

REACTIONS (1)
  - Sedation [Recovered/Resolved]
